FAERS Safety Report 6206632-2 (Version None)
Quarter: 2009Q2

REPORT INFORMATION
  Report Type: 
  Country: None (occurrence: None)
  Receive Date: 20090528
  Receipt Date: 20090522
  Transmission Date: 20091009
  Serious: Yes (Death)
  Sender: FDA-Public Use
  Company Number: AU-CELGENEUS-008-21880-09051521

PATIENT
  Sex: Female

DRUGS (1)
  1. REVLIMID [Suspect]
     Route: 048
     Dates: start: 20080919

REACTIONS (1)
  - DEATH [None]
